FAERS Safety Report 11342711 (Version 5)
Quarter: 2016Q2

REPORT INFORMATION
  Report Type: Report from Study
  Country: US (occurrence: US)
  Receive Date: 20150805
  Receipt Date: 20160418
  Transmission Date: 20160815
  Serious: Yes (Hospitalization)
  Sender: FDA-Public Use
  Company Number: US-ACTELION-A-US2015-117902

PATIENT
  Age: 19 Year
  Sex: Female

DRUGS (5)
  1. VELETRI [Suspect]
     Active Substance: EPOPROSTENOL
     Indication: PULMONARY HYPERTENSION
     Dosage: 28.8 NG/KG, PER MIN
     Route: 042
     Dates: start: 20140402
  2. VELETRI [Suspect]
     Active Substance: EPOPROSTENOL
     Dosage: 26.8 NG/KG, PER MIN
     Route: 042
     Dates: start: 20140326
  3. MACITENTAN [Suspect]
     Active Substance: MACITENTAN
     Indication: PULMONARY HYPERTENSION
     Dosage: 10 MG, QD
     Route: 048
     Dates: start: 20140827
  4. VELETRI [Suspect]
     Active Substance: EPOPROSTENOL
     Dosage: 29 NG/KG, UNK
     Route: 042
     Dates: start: 20150402
  5. ADCIRCA [Concomitant]
     Active Substance: TADALAFIL

REACTIONS (11)
  - Fungal infection [Unknown]
  - Conjunctivitis [Unknown]
  - Condition aggravated [Unknown]
  - Pulmonary arterial hypertension [Unknown]
  - Chest pain [Unknown]
  - Cardiac failure congestive [Unknown]
  - Chest discomfort [Unknown]
  - Vision blurred [Unknown]
  - Dizziness [Unknown]
  - Rash [Not Recovered/Not Resolved]
  - Systemic lupus erythematosus [Unknown]
